FAERS Safety Report 6619888-9 (Version None)
Quarter: 2010Q1

REPORT INFORMATION
  Report Type: 
  Country: None (occurrence: None)
  Receive Date: 20100304
  Receipt Date: 20100203
  Transmission Date: 20100710
  Serious: Yes (Other)
  Sender: FDA-Public Use
  Company Number: US-001433

PATIENT
  Sex: Female
  Weight: 64 kg

DRUGS (1)
  1. DDAVP [Suspect]
     Indication: DIABETES INSIPIDUS
     Dosage: ()

REACTIONS (4)
  - ANURIA [None]
  - CONVULSION [None]
  - DRUG INEFFECTIVE [None]
  - OVERDOSE [None]
